FAERS Safety Report 8580606-9 (Version None)
Quarter: 2012Q3

REPORT INFORMATION
  Report Type: 
  Country: None (occurrence: None)
  Receive Date: 20120809
  Receipt Date: 20120803
  Transmission Date: 20120928
  Serious: Yes (Hospitalization)
  Sender: FDA-Public Use
  Company Number: AR-AMGEN-US232538

PATIENT
  Age: 71 Year
  Sex: Female
  Weight: 54 kg

DRUGS (6)
  1. CINACALCET HYDROCHLORIDE [Suspect]
     Indication: HYPERPARATHYROIDISM SECONDARY
     Dosage: UNK UNK, QD
     Route: 048
     Dates: start: 20061228, end: 20070629
  2. CALCIUM CARBONATE [Concomitant]
     Dosage: 1 G, QID
  3. FOLIC ACID [Concomitant]
     Dosage: 10 MG, QD
  4. IRON [Concomitant]
     Dosage: 100 MG, Q2WK
     Route: 042
  5. VITAMIN B COMPLEX CAP [Concomitant]
  6. EPOGEN [Concomitant]
     Dosage: 8000 IU, QWK
     Route: 042

REACTIONS (2)
  - ANAEMIA [None]
  - EXTRAPYRAMIDAL DISORDER [None]
